FAERS Safety Report 4270768-6 (Version None)
Quarter: 2004Q1

REPORT INFORMATION
  Report Type: 
  Country: None (occurrence: None)
  Receive Date: 20040114
  Receipt Date: 20040109
  Transmission Date: 20041129
  Serious: Yes (Other)
  Sender: FDA-Public Use
  Company Number: CA-ROCHE-355549

PATIENT
  Age: 92 Year
  Sex: Female

DRUGS (3)
  1. TAMIFLU [Suspect]
     Indication: INFLUENZA
     Route: 048
     Dates: start: 20031225, end: 20031231
  2. COUMADIN [Concomitant]
     Dosage: STOPPED ON 31 DEC 2003 AND RESTARTED ON 07 JAN 2004.
     Route: 048
     Dates: start: 20010915
  3. COUMADIN [Concomitant]
     Route: 048
     Dates: start: 20040102, end: 20040107

REACTIONS (1)
  - INTERNATIONAL NORMALISED RATIO INCREASED [None]
